FAERS Safety Report 17344500 (Version 1)
Quarter: 2020Q1

REPORT INFORMATION
  Report Type: Spontaneous
  Country: US (occurrence: US)
  Receive Date: 20200129
  Receipt Date: 20200129
  Transmission Date: 20200409
  Serious: Yes (Other)
  Sender: FDA-Public Use
  Company Number: US-JNJFOC-20200132760

PATIENT
  Age: 62 Year
  Sex: Male
  Weight: 81.72 kg

DRUGS (1)
  1. YONDELIS [Suspect]
     Active Substance: TRABECTEDIN
     Indication: SOFT TISSUE SARCOMA
     Route: 042
     Dates: start: 201907

REACTIONS (1)
  - Catheter site cellulitis [Unknown]

NARRATIVE: CASE EVENT DATE: 20200114
